FAERS Safety Report 21095126 (Version 1)
Quarter: 2022Q3

REPORT INFORMATION
  Report Type: Spontaneous
  Country: US (occurrence: None)
  Receive Date: 20220716
  Receipt Date: 20220716
  Transmission Date: 20221027
  Serious: Yes (Disabling)
  Sender: FDA-Public Use
  Company Number: None

PATIENT
  Age: 46 Year
  Sex: Female
  Weight: 73.8 kg

DRUGS (1)
  1. EMGALITY [Suspect]
     Active Substance: GALCANEZUMAB-GNLM
     Indication: Migraine

REACTIONS (23)
  - Arthralgia [None]
  - Myalgia [None]
  - Bone pain [None]
  - Musculoskeletal discomfort [None]
  - Musculoskeletal discomfort [None]
  - Joint effusion [None]
  - Weight increased [None]
  - Abdominal distension [None]
  - Constipation [None]
  - Tinnitus [None]
  - Confusional state [None]
  - Mental impairment [None]
  - Speech disorder [None]
  - Dizziness [None]
  - Feeling hot [None]
  - Hyperhidrosis [None]
  - Blood urine present [None]
  - Chromaturia [None]
  - Influenza [None]
  - Pain [None]
  - Fatigue [None]
  - Bedridden [None]
  - Blood parathyroid hormone increased [None]
